FAERS Safety Report 9820797 (Version 1)
Quarter: 2013Q4

REPORT INFORMATION
  Report Type: Spontaneous
  Country: US (occurrence: None)
  Receive Date: 20131028
  Receipt Date: 20131028
  Transmission Date: 20140711
  Serious: No
  Sender: FDA-Public Use
  Company Number: 2013US001442

PATIENT
  Age: 69 Year
  Sex: Male
  Weight: 86 kg

DRUGS (8)
  1. ICLUSIG [Suspect]
     Indication: B-CELL TYPE ACUTE LEUKAEMIA
     Route: 048
     Dates: start: 20130130, end: 20130401
  2. ICLUSIG [Suspect]
     Indication: ACUTE LYMPHOCYTIC LEUKAEMIA
     Route: 048
     Dates: start: 20130130, end: 20130401
  3. ICLUSIG [Suspect]
     Indication: CHROMOSOME ANALYSIS ABNORMAL
     Route: 048
     Dates: start: 20130130, end: 20130401
  4. AMIODARONE (AMIODARONE) [Concomitant]
  5. NORVASC (AMLODIPINE BESILATE) [Concomitant]
  6. METOPROLOL (METOPROLOL) [Concomitant]
  7. SOMA (CARISOPRODOL) [Concomitant]
  8. OXYCODONE (OXYCODONE) [Concomitant]

REACTIONS (1)
  - Disease progression [None]
